FAERS Safety Report 15963581 (Version 1)
Quarter: 2019Q1

REPORT INFORMATION
  Report Type: Spontaneous
  Country: US (occurrence: US)
  Receive Date: 20190214
  Receipt Date: 20190214
  Transmission Date: 20190417
  Serious: No
  Sender: FDA-Public Use
  Company Number: US-PFIZER INC-2019064951

PATIENT
  Age: 84 Year
  Sex: Female
  Weight: 36.29 kg

DRUGS (2)
  1. ADVIL [Suspect]
     Active Substance: IBUPROFEN
     Indication: PAIN IN EXTREMITY
     Dosage: 200 MG, UNK(200MG TABLETS OVER SPACE OF THREE HOURS TOOK SIX)
     Route: 048
     Dates: start: 20190207
  2. ADVIL [Suspect]
     Active Substance: IBUPROFEN
     Indication: SLEEP DISORDER

REACTIONS (2)
  - Intentional product misuse [Unknown]
  - Abdominal pain upper [Not Recovered/Not Resolved]

NARRATIVE: CASE EVENT DATE: 20190207
